FAERS Safety Report 8157347-5 (Version None)
Quarter: 2012Q1

REPORT INFORMATION
  Report Type: 
  Country: None (occurrence: None)
  Receive Date: 20120222
  Receipt Date: 20120210
  Transmission Date: 20120608
  Serious: Yes (Hospitalization)
  Sender: FDA-Public Use
  Company Number: PL-ELI_LILLY_AND_COMPANY-PL201110007343

PATIENT
  Sex: Male
  Weight: 70 kg

DRUGS (5)
  1. ATROVENT [Concomitant]
     Dosage: UNK
  2. NECITUMUMAB (11F8) (LY3012211) [Suspect]
     Indication: NON-SMALL CELL LUNG CANCER STAGE IV
     Dosage: 800 MG, EVERY 21 DAYS/CYCLE
     Route: 042
     Dates: start: 20110706
  3. CISPLATIN [Suspect]
     Indication: NON-SMALL CELL LUNG CANCER STAGE IV
     Dosage: 133 MG, EVERY 21 DAYS/CYCLE
     Route: 042
     Dates: start: 20110706
  4. GEMCITABINE HYDROCHLORIDE [Suspect]
     Indication: NON-SMALL CELL LUNG CANCER STAGE IV
     Dosage: 2250 MG, EVERY 21 DAYS/CYCLE
     Route: 042
     Dates: start: 20110706
  5. FRAGMIN [Concomitant]
     Dosage: UNK

REACTIONS (1)
  - THROMBOSIS [None]
